FAERS Safety Report 23570968 (Version 2)
Quarter: 2024Q2

REPORT INFORMATION
  Report Type: Spontaneous
  Country: US (occurrence: US)
  Receive Date: 20240227
  Receipt Date: 20240426
  Transmission Date: 20240715
  Serious: No
  Sender: FDA-Public Use
  Company Number: US-PFIZER INC-PV202400027214

PATIENT
  Age: 63 Year
  Sex: Female

DRUGS (1)
  1. NURTEC ODT [Suspect]
     Active Substance: RIMEGEPANT SULFATE
     Indication: Migraine
     Dosage: TAKE 1 TABLET BY MOUTH ONCE DAILY AS NEEDED
     Route: 048

REACTIONS (2)
  - Eye irritation [Unknown]
  - Eye naevus [Unknown]
